FAERS Safety Report 8484225-4 (Version None)
Quarter: 2012Q3

REPORT INFORMATION
  Report Type: 
  Country: None (occurrence: None)
  Receive Date: 20120703
  Receipt Date: 20120627
  Transmission Date: 20120928
  Serious: Yes (Life-Threatening, Other)
  Sender: FDA-Public Use
  Company Number: JP-SANOFI-AVENTIS-2010SA069822

PATIENT
  Age: 81 Year
  Sex: Female
  Weight: 41.4 kg

DRUGS (15)
  1. PREDNISOLONE [Concomitant]
     Route: 048
  2. MAGNESIUM OXIDE [Concomitant]
     Indication: CONSTIPATION
     Route: 048
     Dates: start: 20100420
  3. LASIX [Concomitant]
     Route: 048
  4. AMBROXOL [Concomitant]
     Route: 048
  5. RANITIDINE HCL [Concomitant]
     Indication: PROPHYLAXIS
     Route: 048
     Dates: start: 20100419
  6. ITAVASTATIN [Concomitant]
     Route: 048
     Dates: start: 20100419
  7. ASPIRIN [Concomitant]
     Route: 048
     Dates: start: 20100419
  8. PLAVIX [Suspect]
     Route: 048
     Dates: start: 20100419, end: 20100419
  9. ENALAPRIL MALEATE [Concomitant]
     Indication: CARDIAC FAILURE
     Route: 048
     Dates: start: 20100419
  10. HEPARIN SODIUM [Concomitant]
     Dosage: DOSE:15000 UNIT(S)
     Route: 042
     Dates: start: 20100419, end: 20100421
  11. CODEINE PHOSPHATE [Concomitant]
     Route: 048
  12. LOXOPROFEN SODIUM [Concomitant]
     Route: 048
     Dates: start: 20100419, end: 20100419
  13. PLAVIX [Suspect]
     Route: 048
     Dates: start: 20100420, end: 20100523
  14. SLOW-K [Concomitant]
     Route: 048
  15. ALENDRONATE SODIUM [Concomitant]
     Route: 048
     Dates: start: 20100420, end: 20100515

REACTIONS (3)
  - PULMONARY EMBOLISM [None]
  - IRON DEFICIENCY ANAEMIA [None]
  - PERIPHERAL ARTERIAL OCCLUSIVE DISEASE [None]
